FAERS Safety Report 6477898-9 (Version None)
Quarter: 2009Q4

REPORT INFORMATION
  Report Type: 
  Country: None (occurrence: None)
  Receive Date: 20091203
  Receipt Date: 20091203
  Transmission Date: 20100525
  Serious: Yes (Other)
  Sender: FDA-Public Use
  Company Number: None

PATIENT
  Age: 31 Year
  Sex: Male
  Weight: 79.3795 kg

DRUGS (1)
  1. NYQUIL NORMAL [Suspect]
     Indication: NASOPHARYNGITIS
     Dosage: RECOMMENDED, TWO PILLS 4-6 HOURS
     Dates: start: 20091130, end: 20091202

REACTIONS (7)
  - CHEST PAIN [None]
  - CHILLS [None]
  - DISORIENTATION [None]
  - HYPOAESTHESIA [None]
  - PYREXIA [None]
  - RASH [None]
  - SKIN DISCOLOURATION [None]
